FAERS Safety Report 9745383 (Version 4)
Quarter: 2014Q2

REPORT INFORMATION
  Report Type: Report from Study
  Country: JP (occurrence: JP)
  Receive Date: 20131211
  Receipt Date: 20140422
  Transmission Date: 20141212
  Serious: Yes (Hospitalization, Other)
  Sender: FDA-Public Use
  Company Number: PHHY2013JP077044

PATIENT
  Age: 42 Year
  Sex: Male

DRUGS (12)
  1. FTY 720 [Suspect]
     Indication: MULTIPLE SCLEROSIS
     Dosage: 0.5 MG, QD
     Route: 048
     Dates: start: 20130128, end: 20130423
  2. FTY 720 [Suspect]
     Dosage: 0.5 MG, QOD
     Route: 048
     Dates: start: 20130424, end: 20130730
  3. FTY 720 [Suspect]
     Dosage: 0.5 MG, Q72H
     Route: 048
     Dates: start: 20130731
  4. METHYCOBAL [Concomitant]
     Dosage: 1500 UG, UNK
     Route: 048
  5. JUVELA N [Concomitant]
     Dosage: 300 MG, UNK
     Route: 048
  6. TOFRANIL [Concomitant]
     Dosage: 10 MG, UNK
     Route: 048
  7. LIORESAL [Concomitant]
     Dosage: 30 MG, UNK
     Route: 048
  8. TERNELIN [Concomitant]
     Dosage: 3 MG, UNK
     Route: 048
  9. NORVASC [Concomitant]
     Dosage: 2.5 MG, UNK
     Route: 048
  10. PURSENNIDE [Concomitant]
     Dosage: 2 DF, UNK
     Route: 048
  11. SOL-MELCORT [Concomitant]
     Dosage: 1000 MG, UNK
     Route: 042
     Dates: start: 20140109, end: 20140111
  12. SOL-MELCORT [Concomitant]
     Dosage: 1000 MG, UNK
     Route: 042
     Dates: start: 20140115, end: 20140117

REACTIONS (3)
  - Hepatic function abnormal [Not Recovered/Not Resolved]
  - Lymphocyte count decreased [Recovering/Resolving]
  - Urinary retention [Recovered/Resolved with Sequelae]
